FAERS Safety Report 5717153-5 (Version None)
Quarter: 2008Q2

REPORT INFORMATION
  Report Type: 
  Country: None (occurrence: None)
  Receive Date: 20080424
  Receipt Date: 20080412
  Transmission Date: 20081010
  Serious: Yes (Other)
  Sender: FDA-Public Use
  Company Number: US-PFIZER INC-2008033053

PATIENT
  Sex: Female
  Weight: 83.9 kg

DRUGS (3)
  1. CHANTIX [Suspect]
     Indication: SMOKING CESSATION THERAPY
  2. ADVIL [Concomitant]
  3. LEXAPRO [Concomitant]

REACTIONS (5)
  - ABDOMINAL PAIN UPPER [None]
  - AGGRESSION [None]
  - ANGER [None]
  - IRRITABILITY [None]
  - RESTLESSNESS [None]
